FAERS Safety Report 13728526 (Version 1)
Quarter: 2017Q3

REPORT INFORMATION
  Report Type: Spontaneous
  Country: US (occurrence: US)
  Receive Date: 20170707
  Receipt Date: 20170707
  Transmission Date: 20171127
  Serious: No
  Sender: FDA-Public Use
  Company Number: US-ASTRAZENECA-2017SE68699

PATIENT
  Sex: Female

DRUGS (25)
  1. ADVAIR DISKUS [Concomitant]
     Active Substance: FLUTICASONE PROPIONATE\SALMETEROL XINAFOATE
     Indication: HYPERSENSITIVITY
     Dosage: 250/50, 1 PUFF TWICE A DAY
  2. VITAMIN D [Concomitant]
     Active Substance: CHOLECALCIFEROL
  3. HYDRALAZINE [Concomitant]
     Active Substance: HYDRALAZINE HYDROCHLORIDE
     Dosage: 50.0MG AS REQUIRED
  4. ALTACE [Suspect]
     Active Substance: RAMIPRIL
     Route: 048
  5. TIKOSYN [Suspect]
     Active Substance: DOFETILIDE
     Route: 065
  6. WARFARIN [Concomitant]
     Active Substance: WARFARIN
     Route: 065
  7. VENTOLIN HFA [Concomitant]
     Active Substance: ALBUTEROL SULFATE
     Dosage: 90 MCG INHALER 1 PUFF EVERY 4 HOURS AS NEEDED
  8. BENADRYL [Concomitant]
     Active Substance: DIPHENHYDRAMINE HYDROCHLORIDE
     Indication: ASTHMA
  9. MUCINEX [Concomitant]
     Active Substance: GUAIFENESIN
  10. ALLEGRA [Concomitant]
     Active Substance: FEXOFENADINE HYDROCHLORIDE
     Indication: HYPERSENSITIVITY
     Route: 065
  11. CALCIUM WITH VITAMIN D [Concomitant]
     Active Substance: CALCIUM\VITAMIN D
  12. FLAGYL [Suspect]
     Active Substance: METRONIDAZOLE\METRONIDAZOLE HYDROCHLORIDE
     Route: 065
  13. BALANCED B-100 [Concomitant]
  14. SYMBICORT [Suspect]
     Active Substance: BUDESONIDE\FORMOTEROL FUMARATE DIHYDRATE
     Route: 055
  15. ADVAIR DISKUS [Concomitant]
     Active Substance: FLUTICASONE PROPIONATE\SALMETEROL XINAFOATE
     Indication: ASTHMA
     Dosage: 250/50, 1 PUFF TWICE A DAY
  16. BONIVA [Concomitant]
     Active Substance: IBANDRONATE SODIUM
  17. LOPRESSOR [Suspect]
     Active Substance: METOPROLOL TARTRATE
     Route: 065
  18. OMEPRAZOLE. [Suspect]
     Active Substance: OMEPRAZOLE
     Indication: GASTROOESOPHAGEAL REFLUX DISEASE
     Route: 048
  19. OXYBUTYNIN CL ER [Concomitant]
     Active Substance: OXYBUTYNIN CHLORIDE
     Indication: URINARY INCONTINENCE
  20. MULTIVITAMIN [Concomitant]
     Active Substance: VITAMINS
  21. ZOCOR [Concomitant]
     Active Substance: SIMVASTATIN
     Indication: BLOOD CHOLESTEROL ABNORMAL
  22. BENADRYL [Concomitant]
     Active Substance: DIPHENHYDRAMINE HYDROCHLORIDE
     Indication: HYPERSENSITIVITY
  23. GLUCOSAMINE/CHONDROITIN [Concomitant]
     Indication: ARTHRITIS
  24. DONEPEZIL HYDROCHLORIDE. [Concomitant]
     Active Substance: DONEPEZIL HYDROCHLORIDE
     Indication: BLOOD CHOLESTEROL ABNORMAL
     Dosage: 5 MG EVERY MORNING AFTER BREAKFAST
  25. NIFEDIPINE. [Concomitant]
     Active Substance: NIFEDIPINE

REACTIONS (8)
  - Chronic obstructive pulmonary disease [Unknown]
  - Atrial fibrillation [Unknown]
  - Asthma [Unknown]
  - Vomiting [Unknown]
  - Hypertension [Unknown]
  - Osteoporosis [Unknown]
  - Drug hypersensitivity [Unknown]
  - Nausea [Unknown]
